FAERS Safety Report 10156558 (Version 1)
Quarter: 2014Q2

REPORT INFORMATION
  Report Type: Report from Study
  Country: CA (occurrence: CA)
  Receive Date: 20140507
  Receipt Date: 20140507
  Transmission Date: 20141212
  Serious: Yes (Other)
  Sender: FDA-Public Use
  Company Number: CA-ROCHE-1391770

PATIENT
  Sex: Female

DRUGS (12)
  1. ACTEMRA [Suspect]
     Indication: RHEUMATOID ARTHRITIS
     Dosage: LAST DOSE ON: 17/MAY/2011
     Route: 042
     Dates: start: 20100922
  2. METHOTREXATE [Concomitant]
  3. PREDNISONE [Concomitant]
  4. RELAFEN [Concomitant]
  5. FOLIC ACID [Concomitant]
  6. VITAMIN B12 [Concomitant]
  7. VITAMIN B6 [Concomitant]
  8. HYDROCHLOROTHIAZIDE [Concomitant]
     Indication: BLOOD PRESSURE
  9. RAMIPRIL [Concomitant]
     Indication: BLOOD PRESSURE
  10. LOSEC [Concomitant]
  11. TYLENOL #2 (CANADA) [Concomitant]
     Route: 065
  12. TYLENOL #3 (CANADA) [Concomitant]
     Route: 065

REACTIONS (4)
  - Interstitial lung disease [Not Recovered/Not Resolved]
  - Iron deficiency [Not Recovered/Not Resolved]
  - Hypertension [Not Recovered/Not Resolved]
  - Rheumatoid arthritis [Unknown]
